FAERS Safety Report 22826469 (Version 3)
Quarter: 2024Q2

REPORT INFORMATION
  Report Type: Report from Study
  Country: ES (occurrence: ES)
  Receive Date: 20230816
  Receipt Date: 20240403
  Transmission Date: 20240716
  Serious: Yes (Death, Hospitalization)
  Sender: FDA-Public Use
  Company Number: ES-CELLTRION INC.-2023ES016004

PATIENT

DRUGS (40)
  1. BEVACIZUMAB [Suspect]
     Active Substance: BEVACIZUMAB
     Indication: Lung cancer metastatic
     Dosage: 458 MG
     Route: 065
     Dates: start: 20201229
  2. BEVACIZUMAB [Suspect]
     Active Substance: BEVACIZUMAB
     Indication: Lung cancer metastatic
     Dosage: 458 MG
     Route: 065
     Dates: start: 20201229
  3. CARBOPLATIN [Suspect]
     Active Substance: CARBOPLATIN
     Indication: Lung cancer metastatic
     Dosage: 514 MG
     Route: 065
     Dates: start: 20201229
  4. PACLITAXEL [Suspect]
     Active Substance: PACLITAXEL
     Indication: Lung cancer metastatic
     Dosage: 325 MG
     Route: 065
     Dates: start: 20201229
  5. ATEZOLIZUMAB [Suspect]
     Active Substance: ATEZOLIZUMAB
     Indication: Lung cancer metastatic
     Dosage: 1200 MG, EVERY 3 WEEKS, NEXT DOSE: 11/FEB/2021, START DATE OF MOST RECENT DOSE OF STUDY DRUG PRIOR T
     Route: 042
     Dates: start: 20201229
  6. ATEZOLIZUMAB [Suspect]
     Active Substance: ATEZOLIZUMAB
     Dosage: 1200 MG EVERY 3 WEEKS START DATE OF MOST RECENT DOSE OF STUDY DRUG PRIOR TO AE: 14/JAN/2021 START DA
     Route: 042
     Dates: start: 20210121
  7. MONUROL [Concomitant]
     Active Substance: FOSFOMYCIN TROMETHAMINE
     Dosage: UNK, QD
     Dates: start: 20220221, end: 20220223
  8. ATEZOLIZUMAB [Concomitant]
     Active Substance: ATEZOLIZUMAB
  9. DESVENLAFAXINE [Concomitant]
     Active Substance: DESVENLAFAXINE
     Indication: Prophylaxis
     Dosage: UNK, QD
     Dates: start: 20201229
  10. METAMIZOL [Concomitant]
     Active Substance: METAMIZOLE SODIUM
     Indication: Prophylaxis
     Dosage: 2 G, EVERY 0.33 A DAY
     Dates: start: 20201229
  11. PRISTIQ EXTENDED-RELEASE [Concomitant]
     Active Substance: DESVENLAFAXINE SUCCINATE
     Indication: Prophylaxis
     Dosage: UNK, QD
     Dates: start: 20201229
  12. LOPERAMIDE [Concomitant]
     Active Substance: LOPERAMIDE
     Dosage: UNK
     Dates: start: 20220503, end: 20220503
  13. GABAPENTIN [Concomitant]
     Active Substance: GABAPENTIN
     Indication: Prophylaxis
     Dosage: EVERY 0.33 A DAY
     Dates: start: 20201229
  14. ONDANSETRON [Concomitant]
     Active Substance: ONDANSETRON
     Indication: Prophylaxis
     Dosage: EVERY 0.33 A DAY
     Dates: start: 20210325, end: 20220221
  15. ONDANSETRON [Concomitant]
     Active Substance: ONDANSETRON
     Dosage: EVERY 0.33 A DAY
     Dates: start: 20201228, end: 20210101
  16. ONDANSETRON [Concomitant]
     Active Substance: ONDANSETRON
     Dosage: UNK
     Dates: start: 20210127, end: 20210131
  17. PIPERACILLIN SODIUM\TAZOBACTAM SODIUM [Concomitant]
     Active Substance: PIPERACILLIN SODIUM\TAZOBACTAM SODIUM
     Indication: Prophylaxis
     Dosage: UNK, QD
     Dates: start: 20220413
  18. PIPERACILLIN SODIUM\TAZOBACTAM SODIUM [Concomitant]
     Active Substance: PIPERACILLIN SODIUM\TAZOBACTAM SODIUM
     Dosage: EVERY 0.33 A DAY
     Dates: start: 20210621, end: 20220221
  19. PIPERACILLIN SODIUM\TAZOBACTAM SODIUM [Concomitant]
     Active Substance: PIPERACILLIN SODIUM\TAZOBACTAM SODIUM
     Dosage: UNK, QD
     Dates: start: 20220513, end: 20220613
  20. MORPHINE [Concomitant]
     Active Substance: MORPHINE
     Indication: Prophylaxis
     Dosage: EVERY 0.5 A DAY
     Dates: start: 20201229
  21. ACETAMINOPHEN [Concomitant]
     Active Substance: ACETAMINOPHEN
     Indication: Prophylaxis
     Dosage: EVERY 0.33 A DAY
     Dates: start: 20201229
  22. ALMAGATE [Concomitant]
     Active Substance: ALMAGATE
     Indication: Prophylaxis
     Dosage: EVERY 0.33 A DAY
     Dates: start: 20210621, end: 20220221
  23. PREGABALIN [Concomitant]
     Active Substance: PREGABALIN
     Dosage: UNK
     Dates: start: 20210415
  24. LORAZEPAM [Concomitant]
     Active Substance: LORAZEPAM
     Indication: Prophylaxis
     Dosage: EVERY 0.33 A DAY
     Dates: start: 20201229
  25. LORAZEPAM [Concomitant]
     Active Substance: LORAZEPAM
     Dosage: EVERY 0.33 A DAY
     Dates: start: 20201229
  26. CALCIUM CARBONATE\CHOLECALCIFEROL [Concomitant]
     Active Substance: CALCIUM CARBONATE\CHOLECALCIFEROL
     Dosage: UNK, QD
     Dates: start: 20201229
  27. INFLUENZA VIRUS VACCINE [Concomitant]
     Active Substance: INFLUENZA VIRUS VACCINE
     Indication: Prophylaxis
     Dosage: UNK
     Dates: start: 202201, end: 202201
  28. ZOLEDRONIC ACID [Concomitant]
     Active Substance: ZOLEDRONIC ACID
     Indication: Prophylaxis
     Dosage: UNK
     Dates: start: 20210304, end: 20220131
  29. ZOLEDRONIC ACID [Concomitant]
     Active Substance: ZOLEDRONIC ACID
     Dosage: UNK
     Dates: start: 20210121, end: 20210211
  30. PANTOPRAZOLE [Concomitant]
     Active Substance: PANTOPRAZOLE
     Indication: Prophylaxis
     Dosage: EVERY 0.5 A DAY
  31. PANTOPRAZOLE [Concomitant]
     Active Substance: PANTOPRAZOLE
     Dosage: EVERY 0.5 A DAY
     Dates: start: 20210430
  32. DEXAMETHASONE [Concomitant]
     Active Substance: DEXAMETHASONE
     Indication: Prophylaxis
     Dosage: EVERY 0.5 A DAY
     Dates: start: 20201229
  33. CIPROFLOXACIN [Concomitant]
     Active Substance: CIPROFLOXACIN
     Indication: Prophylaxis
     Dosage: EVERY 0.5 A DAY
     Dates: start: 20210531, end: 20210607
  34. ATROVENT [Concomitant]
     Active Substance: IPRATROPIUM BROMIDE
     Indication: Prophylaxis
     Dosage: UNK
     Dates: start: 20220221
  35. MST-30 [Concomitant]
     Indication: Prophylaxis
     Dosage: EVERY 0.5 A DAY
     Dates: start: 20201229
  36. NYSTATIN [Concomitant]
     Active Substance: NYSTATIN
     Dosage: EVERY 0.33 A DAY
     Dates: start: 20201229
  37. NYSTATIN [Concomitant]
     Active Substance: NYSTATIN
     Dosage: UNK, QD
     Dates: start: 20210506
  38. NYSTATIN [Concomitant]
     Active Substance: NYSTATIN
     Dosage: EVERY 0.5 A DAY
     Dates: start: 20210430
  39. FOSAPREPITANT [Concomitant]
     Active Substance: FOSAPREPITANT
     Indication: Prophylaxis
     Dosage: UNK
     Dates: start: 20210211, end: 20210211
  40. METHYLPREDNISOLONE [Concomitant]
     Active Substance: METHYLPREDNISOLONE
     Dosage: UNK, QD
     Dates: start: 20210923

REACTIONS (9)
  - Death [Fatal]
  - Vomiting [Recovered/Resolved]
  - Anxiety [Recovered/Resolved]
  - Haematuria [Recovered/Resolved]
  - Oral candidiasis [Recovered/Resolved]
  - Back pain [Not Recovered/Not Resolved]
  - Mucosal inflammation [Recovered/Resolved]
  - Abdominal pain [Recovered/Resolved]
  - Nausea [Recovered/Resolved]

NARRATIVE: CASE EVENT DATE: 20210104
